FAERS Safety Report 8344505-X (Version None)
Quarter: 2012Q2

REPORT INFORMATION
  Report Type: 
  Country: None (occurrence: None)
  Receive Date: 20120508
  Receipt Date: 20120427
  Transmission Date: 20120825
  Serious: No
  Sender: FDA-Public Use
  Company Number: US-ROCHE-GNE311558

PATIENT
  Sex: Female
  Weight: 84.19 kg

DRUGS (6)
  1. ESTRADIOL [Concomitant]
     Indication: PRODUCT USED FOR UNKNOWN INDICATION
  2. CAFERGOT [Concomitant]
     Indication: PRODUCT USED FOR UNKNOWN INDICATION
  3. GABAPENTIN [Concomitant]
     Indication: PRODUCT USED FOR UNKNOWN INDICATION
  4. SOMATROPIN [Suspect]
     Dosage: 0.2 MG, QD
     Route: 058
     Dates: start: 20100601
  5. SOMATROPIN [Suspect]
     Indication: PITUITARY TUMOUR
  6. LEVOTHYROXINE SODIUM [Concomitant]
     Indication: PRODUCT USED FOR UNKNOWN INDICATION

REACTIONS (11)
  - DEPRESSION [None]
  - MENTAL IMPAIRMENT [None]
  - FATIGUE [None]
  - GLUCOSE TOLERANCE IMPAIRED [None]
  - THINKING ABNORMAL [None]
  - FEELING ABNORMAL [None]
  - ARTHRALGIA [None]
  - BLOOD GLUCOSE INCREASED [None]
  - ASTHENIA [None]
  - MEDICATION ERROR [None]
  - HEADACHE [None]
